FAERS Safety Report 6235768-5 (Version None)
Quarter: 2009Q2

REPORT INFORMATION
  Report Type: 
  Country: None (occurrence: None)
  Receive Date: 20090617
  Receipt Date: 20090617
  Transmission Date: 20091009
  Serious: No
  Sender: FDA-Public Use
  Company Number: None

PATIENT
  Age: 33 Year
  Sex: Male
  Weight: 74.8435 kg

DRUGS (1)
  1. ZICAM MATRIXX INITIATIVES [Suspect]
     Indication: NASOPHARYNGITIS
     Dosage: 1 APPLICATION TO EACH NOSTRIL 3 TIMES DAILY NASAL
     Route: 045
     Dates: start: 20090318, end: 20090326

REACTIONS (1)
  - HYPOSMIA [None]
